FAERS Safety Report 25483690 (Version 1)
Quarter: 2025Q2

REPORT INFORMATION
  Report Type: Report from Study
  Country: US (occurrence: US)
  Receive Date: 20250626
  Receipt Date: 20250626
  Transmission Date: 20250716
  Serious: Yes (Hospitalization, Other)
  Sender: UCB
  Company Number: US-UCBSA-2024063105

PATIENT
  Age: 20 Year
  Sex: Male
  Weight: 59 kg

DRUGS (20)
  1. FINTEPLA [Suspect]
     Active Substance: FENFLURAMINE
     Indication: Lennox-Gastaut syndrome
     Dosage: 5.9 MILLILITER, 2X/DAY (BID)
     Dates: start: 20220902
  2. KEPPRA [Suspect]
     Active Substance: LEVETIRACETAM
     Indication: Lennox-Gastaut syndrome
     Dates: start: 20250501
  3. KEPPRA [Suspect]
     Active Substance: LEVETIRACETAM
     Indication: Off label use
     Dates: start: 20250610
  4. XCOPRI [Concomitant]
     Active Substance: CENOBAMATE
     Indication: Lennox-Gastaut syndrome
     Dosage: 50 MG TAB TABLET, 2 TABLETS (100 MG TOTAL) BY PER G TUBE ROUTE NIGHTLY., DISP: 60 TABLET
     Dates: start: 20250610
  5. ONFI [Concomitant]
     Active Substance: CLOBAZAM
     Indication: Lennox-Gastaut syndrome
     Dosage: 10 MG TABLET, TAKE 3 TABLETS (30 MG TOTAL) BY MOUTH 2 TIMES A DAY.,
     Dates: start: 20250610
  6. EPIDIOLEX [Concomitant]
     Active Substance: CANNABIDIOL
     Indication: Lennox-Gastaut syndrome
     Dosage: 100 MG/ML ORAL SOLUTION, 4 MLS (400 MG TOTAL} BY PER G TUBE ROUTE 2 TIMES A DAY. TAKE 7 ML BY MOUTH
     Dates: start: 20250610
  7. ZTALMY [Concomitant]
     Active Substance: GANAXOLONE
     Indication: Lennox-Gastaut syndrome
     Dosage: 12 MLS BY PER G TUBE ROUTE 3 TIMES A DAY
     Dates: start: 20250610
  8. VALTOCO [Concomitant]
     Active Substance: DIAZEPAM
     Indication: Seizure cluster
     Route: 045
     Dates: start: 20250610
  9. FLORINEF ACETATE [Concomitant]
     Active Substance: FLUDROCORTISONE ACETATE
     Indication: Product used for unknown indication
     Dosage: 0.1 MG TABLET, TAKE 1/2 TABLET(0.05 MG) BY MOUTH TWICE DAILY, DISP: 30 TABLET, RFL: 6
     Dates: start: 20250327
  10. NEXIUM I.V. [Concomitant]
     Active Substance: ESOMEPRAZOLE SODIUM
     Indication: Product used for unknown indication
     Dosage: 40 MG DELAYED RELEASE CAPSULE, 1 CAPSULE (40 MG TOTAL) BY PER G TUBE ROUTE DAILY BEFORE BREAKFAST.,
     Dates: start: 20250325
  11. ZOLOFT [Concomitant]
     Active Substance: SERTRALINE HYDROCHLORIDE
     Indication: Product used for unknown indication
     Dosage: 25 MG TABLET, 1 TABLET (25 MG TOTAL) BY PER G TUBE ROUTE DAILY.,
     Dates: start: 20250325
  12. OXYCODONE HYDROCHLORIDE [Concomitant]
     Active Substance: OXYCODONE HYDROCHLORIDE
     Indication: Product used for unknown indication
     Dates: start: 20250324
  13. LOVENOX [Concomitant]
     Active Substance: ENOXAPARIN SODIUM
     Indication: Product used for unknown indication
     Route: 058
     Dates: start: 20250325
  14. MIRALAX [Concomitant]
     Active Substance: POLYETHYLENE GLYCOL 3350
     Indication: Constipation
     Dosage: 17 GRAM PACKET, 17 G BY PER G TUBE ROUTE DAILY AS NEEDED FOR
     Dates: start: 20250324
  15. DUONEB [Concomitant]
     Active Substance: ALBUTEROL SULFATE\IPRATROPIUM BROMIDE
     Indication: Wheezing
     Dates: start: 20250324
  16. FERROUS SULFATE [Concomitant]
     Active Substance: FERROUS SULFATE
     Indication: Product used for unknown indication
     Dosage: 300 MG (60 MG IRON)/5 ML SYRUP, 5 MLS (300 MG TOTAL) BY PER G TUBE ROUTE DAILY
     Dates: start: 20250325
  17. PROAMATINE [Concomitant]
     Active Substance: MIDODRINE HYDROCHLORIDE
     Indication: Product used for unknown indication
     Dosage: 5 MG TABLET, 1 TABLET (5 MG TOTAL) BY PER G TUBE ROUTE 2 TIMES DAILY WITH MEALS.
     Dates: start: 20250318
  18. UNSPECIFIED INGREDIENT [Concomitant]
     Active Substance: UNSPECIFIED INGREDIENT
     Indication: Product used for unknown indication
     Dates: start: 20240624
  19. COLACE [Concomitant]
     Active Substance: DOCUSATE SODIUM
     Indication: Constipation
     Dosage: 0 MG/5 ML LIQUID, 5 MLS (50 MG TOTAL) BY PER G TUBE ROUTE 2 TIMES DAILY AS NEEDED FOR CONSTIPATION (
     Dates: start: 20240416
  20. EPIPEN [Concomitant]
     Active Substance: EPINEPHRINE
     Indication: Bradycardia
     Route: 030

REACTIONS (7)
  - Pneumonia [Unknown]
  - Seizure [Unknown]
  - Oral surgery [Unknown]
  - Tracheostomy [Unknown]
  - Hypernatraemia [Unknown]
  - Wrong technique in product usage process [Unknown]
  - Off label use [Unknown]

NARRATIVE: CASE EVENT DATE: 20230804
